FAERS Safety Report 7276767-4 (Version None)
Quarter: 2011Q1

REPORT INFORMATION
  Report Type: 
  Country: None (occurrence: None)
  Receive Date: 20110206
  Receipt Date: 20110125
  Transmission Date: 20110831
  Serious: Yes (Life-Threatening)
  Sender: FDA-Public Use
  Company Number: HU-BRISTOL-MYERS SQUIBB COMPANY-15278914

PATIENT
  Sex: Female

DRUGS (2)
  1. ONGLYZA [Suspect]
  2. DINOPROSTONE [Suspect]

REACTIONS (1)
  - UTERINE CONTRACTIONS ABNORMAL [None]
